FAERS Safety Report 4776807-8 (Version None)
Quarter: 2005Q3

REPORT INFORMATION
  Report Type: 
  Country: None (occurrence: None)
  Receive Date: 20050923
  Receipt Date: 20050914
  Transmission Date: 20060218
  Serious: Yes (Other)
  Sender: FDA-Public Use
  Company Number: GB-BRISTOL-MYERS SQUIBB COMPANY-13109814

PATIENT
  Age: 54 Year
  Sex: Female
  Weight: 64 kg

DRUGS (5)
  1. IRBESARTAN [Suspect]
     Indication: HYPERTENSION
     Route: 048
     Dates: start: 20050706, end: 20050727
  2. BENDROFLUMETHIAZIDE [Concomitant]
     Indication: HYPERTENSION
     Dosage: THERAPY STARTED IN 2002 AND DISCONTINUED ON 06-JUL-2005 AND RESTARTED ON 28-JUL-2005.
     Route: 048
     Dates: start: 20020101
  3. RAMIPRIL [Concomitant]
     Indication: HYPERTENSION
     Route: 048
     Dates: start: 20010101, end: 20050706
  4. MOVICOL [Concomitant]
     Indication: CONSTIPATION
     Dates: start: 20050609
  5. CEPHALEXIN [Concomitant]
     Indication: URINARY TRACT INFECTION
     Route: 048
     Dates: start: 20050706, end: 20050713

REACTIONS (1)
  - ARTHRALGIA [None]
